FAERS Safety Report 4333279-5 (Version None)
Quarter: 2004Q2

REPORT INFORMATION
  Report Type: 
  Country: None (occurrence: None)
  Receive Date: 20040401
  Receipt Date: 20040329
  Transmission Date: 20050107
  Serious: Yes (Other)
  Sender: FDA-Public Use
  Company Number: US-SHR-03-006018

PATIENT
  Age: 32 Year
  Sex: Male
  Weight: 113.4 kg

DRUGS (1)
  1. BETASERON [Suspect]
     Indication: MULTIPLE SCLEROSIS
     Dosage: 8 MIU, EVERY 2D, SUBCUTANEOUS
     Route: 058
     Dates: start: 20020801, end: 20030315

REACTIONS (3)
  - BRAIN MASS [None]
  - INFLUENZA LIKE ILLNESS [None]
  - MUSCLE CRAMP [None]
